FAERS Safety Report 5752742-3 (Version None)
Quarter: 2008Q2

REPORT INFORMATION
  Report Type: 
  Country: None (occurrence: None)
  Receive Date: 20080529
  Receipt Date: 20080519
  Transmission Date: 20081010
  Serious: Yes (Death)
  Sender: FDA-Public Use
  Company Number: US-ELI_LILLY_AND_COMPANY-US200805003833

PATIENT
  Age: 43 Year
  Sex: Female
  Weight: 56.7 kg

DRUGS (2)
  1. CYMBALTA [Suspect]
     Indication: DEPRESSION
     Dosage: 1 D/F, UNK
  2. BENADRYL ALLERGY /00000402/ [Concomitant]

REACTIONS (1)
  - ROAD TRAFFIC ACCIDENT [None]
